FAERS Safety Report 4777617-8 (Version None)
Quarter: 2005Q3

REPORT INFORMATION
  Report Type: 
  Country: None (occurrence: None)
  Receive Date: 20050921
  Receipt Date: 20050902
  Transmission Date: 20060218
  Serious: Yes (Hospitalization, Other)
  Sender: FDA-Public Use
  Company Number: USA0509107182

PATIENT
  Age: 48 Year
  Sex: Female
  Weight: 55 kg

DRUGS (9)
  1. HUMULIN U [Suspect]
     Indication: DIABETES MELLITUS
     Dosage: 15 U DAY
     Dates: start: 19850101
  2. HUMALOG [Suspect]
     Indication: DIABETES MELLITUS
     Dates: start: 20020101
  3. INSULIN [Suspect]
     Indication: DIABETES MELLITUS
  4. TOPROL (METOPROLOL SUCCINATE) [Concomitant]
  5. ECOTRIN (ACETYLSALICYLIC ACID) [Concomitant]
  6. ZESTRIL [Concomitant]
  7. PRAVACHOL [Concomitant]
  8. LANTUS [Concomitant]
  9. IMDUR [Concomitant]

REACTIONS (18)
  - BLOOD GLUCOSE FLUCTUATION [None]
  - CARDIAC DISORDER [None]
  - DRUG EXPOSURE DURING PREGNANCY [None]
  - DRUG INEFFECTIVE [None]
  - HYPERTENSION [None]
  - IMPAIRED HEALING [None]
  - LOCALISED INFECTION [None]
  - MYOCARDIAL INFARCTION [None]
  - PAIN IN EXTREMITY [None]
  - PREGNANCY [None]
  - RETINOPATHY [None]
  - SKIN DISCOLOURATION [None]
  - SKIN ULCER [None]
  - SWELLING [None]
  - TREATMENT NONCOMPLIANCE [None]
  - VASCULAR OCCLUSION [None]
  - VISUAL DISTURBANCE [None]
  - WEIGHT DECREASED [None]
